FAERS Safety Report 7603812-6 (Version None)
Quarter: 2011Q3

REPORT INFORMATION
  Report Type: 
  Country: None (occurrence: None)
  Receive Date: 20110712
  Receipt Date: 20110701
  Transmission Date: 20111222
  Serious: Yes (Hospitalization)
  Sender: FDA-Public Use
  Company Number: JP-GLAXOSMITHKLINE-B0698185A

PATIENT
  Sex: Female

DRUGS (2)
  1. VENTOLIN [Suspect]
     Indication: BRONCHIOLITIS
     Dosage: .4ML PER DAY
     Route: 055
     Dates: start: 20110130, end: 20110202
  2. INTAL [Concomitant]
     Indication: BRONCHIOLITIS
     Dosage: 8ML PER DAY
     Route: 055
     Dates: start: 20110130, end: 20110202

REACTIONS (3)
  - VENTRICULAR TACHYCARDIA [None]
  - ARRHYTHMIA [None]
  - VENTRICULAR EXTRASYSTOLES [None]
